FAERS Safety Report 19451616 (Version 3)
Quarter: 2021Q3

REPORT INFORMATION
  Report Type: Report from Study
  Country: None (occurrence: US)
  Receive Date: 20210623
  Receipt Date: 20210823
  Transmission Date: 20211014
  Serious: Yes (Other)
  Sender: FDA-Public Use
  Company Number: US-ABBVIE-21K-163-3960917-00

PATIENT
  Age: 76 Year
  Sex: Male
  Weight: 111.23 kg

DRUGS (1)
  1. IMBRUVICA [Suspect]
     Active Substance: IBRUTINIB
     Indication: CHRONIC LYMPHOCYTIC LEUKAEMIA
     Route: 048
     Dates: start: 201905

REACTIONS (1)
  - Micrographic skin surgery [Recovering/Resolving]

NARRATIVE: CASE EVENT DATE: 20210620
